FAERS Safety Report 16396961 (Version 11)
Quarter: 2021Q2

REPORT INFORMATION
  Report Type: Report from Study
  Country: JP (occurrence: JP)
  Receive Date: 20190606
  Receipt Date: 20210618
  Transmission Date: 20210716
  Serious: Yes (Other)
  Sender: FDA-Public Use
  Company Number: JP-SA-2019SA151184

PATIENT
  Age: 25 Year
  Sex: Male
  Weight: 56.7 kg

DRUGS (22)
  1. DUPILUMAB [Suspect]
     Active Substance: DUPILUMAB
     Indication: DERMATITIS ATOPIC
     Dosage: 300 MG, QOW
     Route: 058
     Dates: start: 20190109, end: 20190123
  2. DUPILUMAB [Suspect]
     Active Substance: DUPILUMAB
     Dosage: 600 MG, 1X
     Route: 058
     Dates: start: 20181204, end: 20181204
  3. DUPILUMAB [Suspect]
     Active Substance: DUPILUMAB
     Dosage: 300 MG, 1X
     Route: 058
     Dates: start: 20190903, end: 20190903
  4. DUPILUMAB [Suspect]
     Active Substance: DUPILUMAB
     Dosage: 300 MG, 1X
     Route: 058
     Dates: start: 20191203, end: 20191203
  5. DUPILUMAB [Suspect]
     Active Substance: DUPILUMAB
     Dosage: 300 MG, 1X
     Route: 058
     Dates: start: 20200619, end: 20200619
  6. DUPILUMAB [Suspect]
     Active Substance: DUPILUMAB
     Dosage: 300 MG, 1X
     Route: 058
     Dates: start: 20201204, end: 20201204
  7. ANTEBATE [Concomitant]
     Active Substance: BETAMETHASONE DIPROPIONATE
     Indication: DERMATITIS ATOPIC
     Dosage: SEVERAL TIMES PER DAY
     Route: 061
     Dates: start: 20181204
  8. RINDERON VG [Concomitant]
     Active Substance: BETAMETHASONE VALERATE\GENTAMICIN SULFATE
     Indication: DERMATITIS ATOPIC
     Dosage: SEVERAL TIMES A DAY
     Route: 061
     Dates: start: 20181204
  9. DUPILUMAB [Suspect]
     Active Substance: DUPILUMAB
     Dosage: 300 MG, QOW
     Route: 058
     Dates: start: 20201023, end: 20201106
  10. DUPILUMAB [Suspect]
     Active Substance: DUPILUMAB
     Dosage: 300 MG, 1X
     Route: 058
     Dates: start: 20181219, end: 20181219
  11. DUPILUMAB [Suspect]
     Active Substance: DUPILUMAB
     Dosage: 300 MG, 1X
     Route: 058
     Dates: start: 20190208, end: 20190208
  12. DUPILUMAB [Suspect]
     Active Substance: DUPILUMAB
     Dosage: 300 MG, Q3W
     Route: 058
     Dates: start: 20191210, end: 20200211
  13. DUPILUMAB [Suspect]
     Active Substance: DUPILUMAB
     Dosage: 300 MG, QOW
     Route: 058
     Dates: start: 20200724, end: 20200821
  14. BILANOA [Concomitant]
     Active Substance: BILASTINE
     Indication: DERMATITIS ATOPIC
     Dosage: SEVERAL TIMES PER DAY, DAILY DOSE: 20 MG
     Route: 048
     Dates: start: 20181219, end: 20190109
  15. NADIFLOXACIN [Concomitant]
     Active Substance: NADIFLOXACIN
     Indication: PROPHYLAXIS
     Dosage: UNK
     Route: 065
     Dates: start: 20181204
  16. DUPILUMAB [Suspect]
     Active Substance: DUPILUMAB
     Dosage: 300 MG, QOW
     Route: 058
     Dates: start: 20190327, end: 20190605
  17. DUPILUMAB [Suspect]
     Active Substance: DUPILUMAB
     Dosage: 300 MG, 1X
     Route: 058
     Dates: start: 20190821, end: 20190821
  18. DUPILUMAB [Suspect]
     Active Substance: DUPILUMAB
     Dosage: 300 MG, QOW
     Route: 058
     Dates: start: 20190918, end: 20191016
  19. DUPILUMAB [Suspect]
     Active Substance: DUPILUMAB
     Dosage: 300 MG, 1X
     Route: 058
     Dates: start: 20200911, end: 20200911
  20. PROPETO [Concomitant]
     Active Substance: PETROLATUM
     Indication: DERMATITIS ATOPIC
     Dosage: SEVERAL TIMES PER DAY
     Route: 061
     Dates: start: 20181204
  21. PREDONINE [Concomitant]
     Active Substance: PREDNISOLONE
     Indication: DERMATITIS ATOPIC
     Dosage: DAILY DOSE: 10 MG, SEVERAL TIMES PER DAY
     Route: 048
     Dates: start: 20181219, end: 20190109
  22. DUPILUMAB [Suspect]
     Active Substance: DUPILUMAB
     Dosage: 300 MG, Q4W
     Route: 058
     Dates: start: 20200318, end: 20200513

REACTIONS (10)
  - Conjunctivitis [Recovering/Resolving]
  - Erythema [Recovering/Resolving]
  - Conjunctivitis [Recovered/Resolved]
  - Pruritus [Recovering/Resolving]
  - Staphylococcal impetigo [Recovering/Resolving]
  - Conjunctivitis [Recovering/Resolving]
  - Pyoderma [Recovering/Resolving]
  - Skin exfoliation [Recovering/Resolving]
  - Blepharitis [Recovering/Resolving]
  - Blepharitis [Recovering/Resolving]

NARRATIVE: CASE EVENT DATE: 20190123
